FAERS Safety Report 8167421-5 (Version None)
Quarter: 2012Q1

REPORT INFORMATION
  Report Type: 
  Country: None (occurrence: None)
  Receive Date: 20120221
  Receipt Date: 20120212
  Transmission Date: 20120608
  Serious: Yes (Other)
  Sender: FDA-Public Use
  Company Number: DKLU1076765

PATIENT
  Age: 18 Year
  Sex: Female

DRUGS (5)
  1. TOTAL PARENTERAL NUTRITION (TPN) (TPN) [Concomitant]
  2. NORETHINDRONE [Concomitant]
  3. VINCRISTINE [Suspect]
     Indication: ACUTE LYMPHOCYTIC LEUKAEMIA
  4. ELSPAR [Suspect]
     Indication: ACUTE LYMPHOCYTIC LEUKAEMIA
  5. EPIRUBICIN [Suspect]
     Indication: ACUTE LYMPHOCYTIC LEUKAEMIA

REACTIONS (11)
  - SEPSIS [None]
  - ENTEROCOCCAL BACTERAEMIA [None]
  - ACUTE HEPATIC FAILURE [None]
  - PLEURAL EFFUSION [None]
  - LEUKAEMIA RECURRENT [None]
  - GALLBLADDER DISORDER [None]
  - VENOOCCLUSIVE LIVER DISEASE [None]
  - PYREXIA [None]
  - B PRECURSOR TYPE ACUTE LEUKAEMIA [None]
  - ENCEPHALOPATHY [None]
  - TACHYPNOEA [None]
